FAERS Safety Report 6914628-8 (Version None)
Quarter: 2010Q3

REPORT INFORMATION
  Report Type: 
  Country: None (occurrence: None)
  Receive Date: 20100809
  Receipt Date: 20100728
  Transmission Date: 20110219
  Serious: Yes (Other)
  Sender: FDA-Public Use
  Company Number: CA-MERCK-1007USA03776

PATIENT
  Age: 12 Year
  Sex: Female

DRUGS (7)
  1. SINGULAIR [Suspect]
     Route: 048
  2. AMITRIPTYLINE HYDROCHLORIDE [Concomitant]
     Route: 048
  3. BUSCOPAN [Concomitant]
     Route: 048
  4. IMIPRAMINE HYDROCHLORIDE [Concomitant]
     Route: 048
  5. NASONEX [Concomitant]
     Route: 065
  6. RABEPRAZOLE SODIUM [Concomitant]
     Route: 048
  7. RANITIDINE [Concomitant]
     Route: 048

REACTIONS (10)
  - ABDOMINAL PAIN UPPER [None]
  - ANGER [None]
  - ANTISOCIAL BEHAVIOUR [None]
  - BACK PAIN [None]
  - CRYING [None]
  - EMOTIONAL DISORDER [None]
  - FATIGUE [None]
  - HEADACHE [None]
  - MOOD SWINGS [None]
  - SOCIAL FEAR [None]
